FAERS Safety Report 6399151-4 (Version None)
Quarter: 2009Q4

REPORT INFORMATION
  Report Type: 
  Country: None (occurrence: None)
  Receive Date: 20091008
  Receipt Date: 20091002
  Transmission Date: 20100525
  Serious: Yes (Hospitalization, Other)
  Sender: FDA-Public Use
  Company Number: SO8-USA-01497-01

PATIENT
  Age: 64 Year
  Sex: Male

DRUGS (16)
  1. CELEXA [Suspect]
     Indication: ANXIETY
     Dosage: 10 MG (10 MG 1 IN 1 D), ORAL; 20 MG, (20 MG, 1 IN 1 D), ORAL; 40 MG, (40 MG 1 IN 1 D), ORAL
     Route: 048
     Dates: start: 20010101, end: 20040101
  2. CELEXA [Suspect]
     Indication: DEPRESSION
     Dosage: 10 MG (10 MG 1 IN 1 D), ORAL; 20 MG, (20 MG, 1 IN 1 D), ORAL; 40 MG, (40 MG 1 IN 1 D), ORAL
     Route: 048
     Dates: start: 20010101, end: 20040101
  3. CELEXA [Suspect]
     Indication: ANXIETY
     Dosage: 10 MG (10 MG 1 IN 1 D), ORAL; 20 MG, (20 MG, 1 IN 1 D), ORAL; 40 MG, (40 MG 1 IN 1 D), ORAL
     Route: 048
     Dates: start: 20040101, end: 20040101
  4. CELEXA [Suspect]
     Indication: DEPRESSION
     Dosage: 10 MG (10 MG 1 IN 1 D), ORAL; 20 MG, (20 MG, 1 IN 1 D), ORAL; 40 MG, (40 MG 1 IN 1 D), ORAL
     Route: 048
     Dates: start: 20040101, end: 20040101
  5. CELEXA [Suspect]
     Indication: ANXIETY
     Dosage: 10 MG (10 MG 1 IN 1 D), ORAL; 20 MG, (20 MG, 1 IN 1 D), ORAL; 40 MG, (40 MG 1 IN 1 D), ORAL
     Route: 048
     Dates: start: 20040101, end: 20040101
  6. CELEXA [Suspect]
     Indication: DEPRESSION
     Dosage: 10 MG (10 MG 1 IN 1 D), ORAL; 20 MG, (20 MG, 1 IN 1 D), ORAL; 40 MG, (40 MG 1 IN 1 D), ORAL
     Route: 048
     Dates: start: 20040101, end: 20040101
  7. CELEXA [Suspect]
     Indication: ANXIETY
     Dosage: SEE IMAGE
     Route: 048
     Dates: start: 20040101, end: 20080101
  8. CELEXA [Suspect]
     Indication: DEPRESSION
     Dosage: SEE IMAGE
     Route: 048
     Dates: start: 20040101, end: 20080101
  9. CELEXA [Suspect]
     Indication: ANXIETY
     Dosage: SEE IMAGE
     Route: 048
     Dates: start: 20080101, end: 20080101
  10. CELEXA [Suspect]
     Indication: DEPRESSION
     Dosage: SEE IMAGE
     Route: 048
     Dates: start: 20080101, end: 20080101
  11. CELEXA [Suspect]
     Indication: ANXIETY
     Dosage: SEE IMAGE
     Route: 048
     Dates: start: 20080101, end: 20080101
  12. CELEXA [Suspect]
     Indication: DEPRESSION
     Dosage: SEE IMAGE
     Route: 048
     Dates: start: 20080101, end: 20080101
  13. CELEXA [Suspect]
     Indication: ANXIETY
     Dosage: SEE IMAGE
     Route: 048
     Dates: start: 20080101, end: 20080507
  14. CELEXA [Suspect]
     Indication: DEPRESSION
     Dosage: SEE IMAGE
     Route: 048
     Dates: start: 20080101, end: 20080507
  15. ROZEREM (RAMELTON) [Concomitant]
  16. MIRALAX [Concomitant]

REACTIONS (12)
  - AGGRESSION [None]
  - AGITATION [None]
  - ANGER [None]
  - DRUG DEPENDENCE [None]
  - DRUG INEFFECTIVE [None]
  - FALL [None]
  - FORMICATION [None]
  - INFLUENZA LIKE ILLNESS [None]
  - IRRITABILITY [None]
  - JOINT INJURY [None]
  - OSTEOARTHRITIS [None]
  - PAIN [None]
